FAERS Safety Report 6218820-X (Version None)
Quarter: 2009Q2

REPORT INFORMATION
  Report Type: 
  Country: None (occurrence: None)
  Receive Date: 20090608
  Receipt Date: 20090525
  Transmission Date: 20091009
  Serious: Yes (Other)
  Sender: FDA-Public Use
  Company Number: SE-ELI_LILLY_AND_COMPANY-SE200906000932

PATIENT
  Age: 48 Year
  Sex: Male

DRUGS (12)
  1. ZYPREXA [Suspect]
     Indication: SCHIZOPHRENIA
  2. SEROQUEL [Concomitant]
     Indication: SCHIZOPHRENIA
  3. HIBERNAL [Concomitant]
     Indication: SCHIZOPHRENIA
  4. TRILAFON [Concomitant]
     Indication: SCHIZOPHRENIA
  5. NOZINAN [Concomitant]
     Indication: SCHIZOPHRENIA
  6. MALLOROL [Concomitant]
     Indication: SCHIZOPHRENIA
  7. TERFLUZIN [Concomitant]
     Indication: SCHIZOPHRENIA
  8. HALDOL [Concomitant]
     Indication: SCHIZOPHRENIA
  9. CISORDINOL                              /DEN/ [Concomitant]
     Indication: SCHIZOPHRENIA
  10. LEPONEX [Concomitant]
     Indication: SCHIZOPHRENIA
  11. ROXIAM [Concomitant]
     Indication: SCHIZOPHRENIA
  12. RISPERDAL [Concomitant]

REACTIONS (1)
  - RETINOPATHY [None]
